FAERS Safety Report 15747388 (Version 4)
Quarter: 2019Q1

REPORT INFORMATION
  Report Type: Spontaneous
  Country: JP (occurrence: JP)
  Receive Date: 20181220
  Receipt Date: 20190218
  Transmission Date: 20190417
  Serious: Yes (Death, Other)
  Sender: FDA-Public Use
  Company Number: JP-AMGEN-JPNSP2018181341

PATIENT
  Age: 38 Year
  Sex: Male

DRUGS (10)
  1. AZILVA [Concomitant]
     Active Substance: AZILSARTAN KAMEDOXOMIL
     Indication: HYPERTENSION
     Dosage: 20 MG, QD
     Route: 048
     Dates: start: 20180307
  2. VANCOMYCIN [Concomitant]
     Active Substance: VANCOMYCIN
     Indication: FEBRILE NEUTROPENIA
     Dosage: 1 G, BID
     Route: 041
     Dates: start: 20180409, end: 20180417
  3. MEROPENEM. [Concomitant]
     Active Substance: MEROPENEM
     Indication: FEBRILE NEUTROPENIA
     Dosage: 1 G, TID
     Route: 041
     Dates: start: 20180409, end: 20180417
  4. MEROPENEM. [Concomitant]
     Active Substance: MEROPENEM
     Indication: SEPSIS
  5. VANCOMYCIN [Concomitant]
     Active Substance: VANCOMYCIN
     Indication: SEPSIS
  6. AMLODIPINE                         /00972402/ [Concomitant]
     Active Substance: AMLODIPINE BESYLATE
     Indication: HYPERTENSION
     Dosage: 5 MG, QD
     Route: 048
  7. GRAN [Suspect]
     Active Substance: FILGRASTIM
     Dosage: 300 MUG, QD
     Route: 058
     Dates: start: 20180410, end: 20180410
  8. DAIPHEN [Concomitant]
     Active Substance: SULFAMETHOXAZOLE\TRIMETHOPRIM
     Indication: PNEUMOCYSTIS JIROVECII PNEUMONIA
     Dosage: 1 DF, 3X/WEEK
     Route: 048
     Dates: start: 20180315
  9. GRAN [Suspect]
     Active Substance: FILGRASTIM
     Indication: PERIPHERAL BLOOD STEM CELL APHERESIS
     Dosage: 600 MUG, QD
     Route: 058
     Dates: start: 20180408, end: 20180409
  10. GRAN [Suspect]
     Active Substance: FILGRASTIM
     Dosage: 300 MUG, QD
     Route: 058
     Dates: start: 20180404, end: 20180407

REACTIONS (1)
  - Hypoxia [Recovered/Resolved]

NARRATIVE: CASE EVENT DATE: 20180411
